FAERS Safety Report 4895848-3 (Version None)
Quarter: 2006Q1

REPORT INFORMATION
  Report Type: 
  Country: None (occurrence: None)
  Receive Date: 20060125
  Receipt Date: 20060117
  Transmission Date: 20060701
  Serious: Yes (Hospitalization)
  Sender: FDA-Public Use
  Company Number: 2006009629

PATIENT
  Age: 73 Year
  Sex: Male
  Weight: 55 kg

DRUGS (5)
  1. AMLODIPINE [Suspect]
     Indication: ESSENTIAL HYPERTENSION
     Dosage: 5 MG (5 MG, DAILY), ORAL
     Route: 048
     Dates: start: 20030330
  2. PREVISCAN (FLUINDIONE) [Suspect]
     Indication: EMBOLISM
     Dosage: 60 MG (20 MG, 3 IN 1 D), ORAL
     Route: 048
     Dates: start: 20030330
  3. SOTALOL HCL [Suspect]
     Indication: ARRHYTHMIA
     Dosage: 320 MG (160 MG, 2 IN 1 D), ORAL
     Route: 048
     Dates: start: 20030330, end: 20040420
  4. HYZAAR [Suspect]
     Indication: ESSENTIAL HYPERTENSION
     Dosage: 1 DOSE FORM (DAILY), ORAL
     Route: 048
     Dates: start: 20030330
  5. PRAVASTATIN [Suspect]
     Indication: LIPID METABOLISM DISORDER
     Dosage: 20 MG, ORAL
     Route: 048
     Dates: start: 20030330

REACTIONS (3)
  - CHEST X-RAY ABNORMAL [None]
  - INFLAMMATION [None]
  - PNEUMONITIS [None]
